FAERS Safety Report 8081695-0 (Version None)
Quarter: 2012Q1

REPORT INFORMATION
  Report Type: 
  Country: None (occurrence: None)
  Receive Date: 20120130
  Receipt Date: 20120123
  Transmission Date: 20120608
  Serious: Yes (Hospitalization, Other)
  Sender: FDA-Public Use
  Company Number: PHEH2011US03713

PATIENT
  Sex: Female
  Weight: 60.136 kg

DRUGS (6)
  1. HVI [Concomitant]
     Route: 048
  2. ZYRTEC [Concomitant]
     Route: 048
  3. GILENYA [Suspect]
     Dosage: 0.5 MG, QD
     Route: 048
     Dates: start: 20111114
  4. FISH OIL [Concomitant]
     Route: 048
  5. ZANTAC [Concomitant]
     Route: 048
  6. GILENYA [Suspect]
     Indication: MULTIPLE SCLEROSIS
     Dosage: 0.5 MG, QD
     Route: 048
     Dates: end: 20110912

REACTIONS (5)
  - THROAT TIGHTNESS [None]
  - FEELING HOT [None]
  - ANGIOEDEMA [None]
  - ANAPHYLACTIC REACTION [None]
  - URTICARIA CHRONIC [None]
